FAERS Safety Report 7511369 (Version 2)
Quarter: 2013Q4

REPORT INFORMATION
  Report Type: Spontaneous
  Country: US (occurrence: US)
  Receive Date: 20100730
  Receipt Date: 20131230
  Transmission Date: 20140711
  Serious: Yes (Hospitalization)
  Sender: FDA-Public Use
  Company Number: US-JNJFOC-20100707714

PATIENT
  Age: 77 Year
  Sex: Female

DRUGS (12)
  1. SANDOZ FENTANYL TRANSDERMAL SYSTEM [Suspect]
     Indication: ARTHROPATHY
     Route: 062
     Dates: start: 201004
  2. SANDOZ FENTANYL TRANSDERMAL SYSTEM [Suspect]
     Indication: ARTHROPATHY
     Route: 062
     Dates: start: 201007
  3. SANDOZ FENTANYL TRANSDERMAL SYSTEM [Suspect]
     Indication: MUSCULOSKELETAL DISCOMFORT
     Route: 062
     Dates: start: 201004
  4. SANDOZ FENTANYL TRANSDERMAL SYSTEM [Suspect]
     Indication: MUSCULOSKELETAL DISCOMFORT
     Route: 062
     Dates: start: 201007
  5. FENTANYL [Suspect]
     Indication: ARTHROPATHY
     Route: 062
     Dates: end: 2010
  6. FENTANYL [Suspect]
     Indication: ARTHROPATHY
     Route: 062
     Dates: start: 2009
  7. FENTANYL [Suspect]
     Indication: MUSCULOSKELETAL DISCOMFORT
     Route: 062
     Dates: start: 2009
  8. FENTANYL [Suspect]
     Indication: MUSCULOSKELETAL DISCOMFORT
     Route: 062
     Dates: end: 2010
  9. SANDOZ FENTANYL TRANSDERMAL SYSTEM [Suspect]
     Indication: PRODUCT USED FOR UNKNOWN INDICATION
     Dosage: NDC#: 0781-7241-55
     Route: 062
     Dates: start: 2010
  10. MYLAN FENTANYL TRANSDERMAL SYSTEM [Suspect]
     Indication: ARTHROPATHY
     Route: 062
     Dates: start: 2010, end: 2010
  11. MYLAN FENTANYL TRANSDERMAL SYSTEM [Suspect]
     Indication: MUSCULOSKELETAL DISCOMFORT
     Route: 062
     Dates: start: 2010, end: 2010
  12. STATINS [Concomitant]
     Indication: BLOOD CHOLESTEROL
     Route: 065

REACTIONS (8)
  - Intestinal obstruction [Recovered/Resolved]
  - Application site erythema [Not Recovered/Not Resolved]
  - Drug administered at inappropriate site [Not Recovered/Not Resolved]
  - Inadequate analgesia [Not Recovered/Not Resolved]
  - Wrong technique in drug usage process [Not Recovered/Not Resolved]
  - Product quality issue [None]
  - Product adhesion issue [None]
  - Drug ineffective [None]
